FAERS Safety Report 11588557 (Version 2)
Quarter: 2015Q4

REPORT INFORMATION
  Report Type: Report from Study
  Country: US (occurrence: US)
  Receive Date: 20151002
  Receipt Date: 20151009
  Transmission Date: 20160304
  Serious: Yes (Hospitalization, Other)
  Sender: FDA-Public Use
  Company Number: US-ASTRAZENECA-2015SE92665

PATIENT
  Sex: Female

DRUGS (1)
  1. BRILINTA [Suspect]
     Active Substance: TICAGRELOR
     Indication: ACUTE CORONARY SYNDROME
     Route: 048

REACTIONS (12)
  - Dizziness [Unknown]
  - Thrombosis [Unknown]
  - Vascular occlusion [Unknown]
  - Feeling abnormal [Unknown]
  - Hypotension [Unknown]
  - Depressed level of consciousness [Unknown]
  - Procedural haemorrhage [Unknown]
  - Full blood count decreased [Unknown]
  - Asthenia [Unknown]
  - Heart rate decreased [Unknown]
  - Haemorrhage [Unknown]
  - Thinking abnormal [Unknown]
